FAERS Safety Report 18310413 (Version 1)
Quarter: 2020Q3

REPORT INFORMATION
  Report Type: Spontaneous
  Country: IT (occurrence: IT)
  Receive Date: 20200925
  Receipt Date: 20200925
  Transmission Date: 20201103
  Serious: Yes (Hospitalization, Other)
  Sender: FDA-Public Use
  Company Number: IT-ALKEM LABORATORIES LIMITED-IT-ALKEM-2020-06047

PATIENT
  Age: 47 Year
  Sex: Male

DRUGS (1)
  1. METFORMIN HYDROCHLORIDE. [Suspect]
     Active Substance: METFORMIN HYDROCHLORIDE
     Indication: DIABETES MELLITUS MANAGEMENT
     Dosage: UNK(DAILY)
     Route: 065

REACTIONS (4)
  - Cardiac arrest [Unknown]
  - Toxicity to various agents [Unknown]
  - Lactic acidosis [Recovered/Resolved]
  - Metabolic acidosis [Unknown]
